FAERS Safety Report 19305896 (Version 1)
Quarter: 2021Q2

REPORT INFORMATION
  Report Type: Spontaneous
  Country: BR (occurrence: BR)
  Receive Date: 20210525
  Receipt Date: 20210525
  Transmission Date: 20210717
  Serious: Yes (Life-Threatening, Other)
  Sender: FDA-Public Use
  Company Number: BR-ABBVIE-21K-020-3921144-00

PATIENT

DRUGS (2)
  1. VENCLEXTA [Suspect]
     Active Substance: VENETOCLAX
     Route: 048
  2. VENCLEXTA [Suspect]
     Active Substance: VENETOCLAX
     Indication: ACUTE MYELOID LEUKAEMIA
     Route: 048

REACTIONS (10)
  - Tumour lysis syndrome [Recovered/Resolved]
  - Blood uric acid increased [Recovered/Resolved]
  - Blood creatinine increased [Recovered/Resolved]
  - Metabolic acidosis [Recovered/Resolved]
  - Blood potassium increased [Recovered/Resolved]
  - Tachypnoea [Recovered/Resolved]
  - Hypocalcaemia [Recovered/Resolved]
  - Lymphocyte count increased [Recovered/Resolved]
  - Hyperphosphataemia [Recovered/Resolved]
  - Lung disorder [Recovered/Resolved]
